FAERS Safety Report 20176892 (Version 1)
Quarter: 2021Q4

REPORT INFORMATION
  Report Type: Spontaneous
  Country: US (occurrence: None)
  Receive Date: 20211211
  Receipt Date: 20211211
  Transmission Date: 20220303
  Serious: Yes (Life-Threatening, Hospitalization)
  Sender: FDA-Public Use
  Company Number: None

PATIENT
  Age: 76 Year
  Sex: Male
  Weight: 81 kg

DRUGS (1)
  1. VEKLURY [Suspect]
     Active Substance: REMDESIVIR
     Indication: COVID-19

REACTIONS (4)
  - Pulmonary embolism [None]
  - Product quality issue [None]
  - Pulmonary thrombosis [None]
  - Product contamination physical [None]

NARRATIVE: CASE EVENT DATE: 20211102
